FAERS Safety Report 19982473 (Version 3)
Quarter: 2021Q4

REPORT INFORMATION
  Report Type: Spontaneous
  Country: CN (occurrence: CN)
  Receive Date: 20211022
  Receipt Date: 20211121
  Transmission Date: 20220303
  Serious: Yes (Death)
  Sender: FDA-Public Use
  Company Number: CN-009507513-2110CHN006163

PATIENT
  Age: 49 Year
  Sex: Male

DRUGS (17)
  1. IMIPENEM AND CILASTATIN [Suspect]
     Active Substance: CILASTATIN SODIUM\IMIPENEM
     Indication: Anti-infective therapy
     Dosage: 500MG/DOSE, TID (Q8H)
     Dates: start: 20190706
  2. TEICOPLANIN [Suspect]
     Active Substance: TEICOPLANIN
     Indication: Infection prophylaxis
     Dosage: 200MG/DOSE, QD
     Dates: start: 201907
  3. TEICOPLANIN [Suspect]
     Active Substance: TEICOPLANIN
     Indication: Anti-infective therapy
  4. SULFAMETHOXAZOLE [Suspect]
     Active Substance: SULFAMETHOXAZOLE
     Indication: Anti-infective therapy
     Dosage: 2 TABLETS/DOSE
     Route: 048
     Dates: start: 20190711
  5. TIGECYCLINE [Suspect]
     Active Substance: TIGECYCLINE
     Indication: Anti-infective therapy
     Dosage: 50MG/DOSE, BID
     Route: 041
     Dates: start: 20190711
  6. TIGECYCLINE [Suspect]
     Active Substance: TIGECYCLINE
     Dosage: 100MG/DOSE, BID (Q12H)
     Dates: start: 201907
  7. MEROPENEM [Suspect]
     Active Substance: MEROPENEM
     Indication: Infection prophylaxis
     Dosage: 500MG/DOSE, Q8H
     Dates: start: 201907
  8. MEROPENEM [Suspect]
     Active Substance: MEROPENEM
     Indication: Anti-infective therapy
  9. POLYMYXIN [Suspect]
     Active Substance: POLYMYXIN
     Indication: Anti-infective therapy
     Dosage: UNK
     Dates: start: 201907
  10. BASILIXIMAB [Concomitant]
     Active Substance: BASILIXIMAB
     Indication: Immune tolerance induction
     Dosage: 20MG/DOSE
     Dates: start: 20190704
  11. TACROLIMUS [Concomitant]
     Active Substance: TACROLIMUS
     Indication: Immunosuppression
     Dosage: UNK
     Dates: start: 201907
  12. MYCOPHENOLATE SODIUM [Concomitant]
     Active Substance: MYCOPHENOLATE SODIUM
     Indication: Immunosuppression
     Dosage: UNK
     Dates: start: 201907
  13. PREDNISOLONE ACETATE [Concomitant]
     Active Substance: PREDNISOLONE ACETATE
     Indication: Immunosuppression
     Dosage: UNK
     Dates: start: 201907
  14. CASPOFUNGIN ACETATE [Concomitant]
     Active Substance: CASPOFUNGIN ACETATE
     Indication: Infection prophylaxis
     Dosage: 70MG/DOSE, QD
     Dates: start: 201907
  15. CASPOFUNGIN ACETATE [Concomitant]
     Active Substance: CASPOFUNGIN ACETATE
     Indication: Anti-infective therapy
     Dosage: 50MG/DOSE, QD
     Dates: start: 20190706
  16. ALBUMIN HUMAN [Concomitant]
     Active Substance: ALBUMIN HUMAN
     Dosage: UNK
     Route: 041
     Dates: start: 201907
  17. HUMAN IMMUNOGLOBULIN G [Concomitant]
     Active Substance: HUMAN IMMUNOGLOBULIN G
     Dosage: UNK
     Dates: start: 201907

REACTIONS (1)
  - Drug ineffective [Fatal]

NARRATIVE: CASE EVENT DATE: 20190701
